FAERS Safety Report 9784744 (Version 1)
Quarter: 2013Q4

REPORT INFORMATION
  Report Type: Spontaneous
  Country: US (occurrence: US)
  Receive Date: 20131227
  Receipt Date: 20131227
  Transmission Date: 20140711
  Serious: Yes (Other)
  Sender: FDA-Public Use
  Company Number: US-ASTRAZENECA-2013SE92916

PATIENT
  Age: 2 Year
  Sex: Male
  Weight: 13.6 kg

DRUGS (4)
  1. SYMBICORT [Suspect]
     Indication: ASTHMA
     Dosage: 160/4.5, 2 PUFFS BID
     Route: 055
     Dates: start: 201201
  2. SINGULAIR [Concomitant]
     Indication: ASTHMA
     Route: 048
     Dates: start: 2012
  3. FLONASE [Concomitant]
     Indication: DYSPNOEA
     Dosage: 50 MCG 2 PUFFS BID
     Route: 045
     Dates: start: 201201
  4. ZYRTEC [Concomitant]
     Indication: DYSPNOEA
     Route: 048

REACTIONS (5)
  - Pneumonia [Recovered/Resolved]
  - Asthma [Unknown]
  - Dyspnoea [Recovered/Resolved]
  - Off label use [Unknown]
  - Off label use [Unknown]
